FAERS Safety Report 12088536 (Version 2)
Quarter: 2016Q1

REPORT INFORMATION
  Report Type: Not Available
  Country: FR (occurrence: FR)
  Receive Date: 20160218
  Receipt Date: 20160322
  Transmission Date: 20160526
  Serious: Yes (Other)
  Sender: FDA-Public Use
  Company Number: FR-BEH-2016058938

PATIENT
  Age: 11 Month
  Sex: Male
  Weight: 10.35 kg

DRUGS (3)
  1. ASPEGIC [Concomitant]
     Active Substance: ASPIRIN DL-LYSINE
     Indication: KAWASAKI^S DISEASE
     Dosage: 80MG/KG/D
     Route: 048
     Dates: start: 20160129
  2. AUGMENTIN [Concomitant]
     Active Substance: AMOXICILLIN\CLAVULANATE POTASSIUM
     Indication: OTITIS MEDIA ACUTE
     Dosage: 350MGX3
     Route: 042
     Dates: start: 20160127
  3. PRIVIGEN [Suspect]
     Active Substance: HUMAN IMMUNOGLOBULIN G
     Indication: KAWASAKI^S DISEASE
     Dosage: MAXIMUM INFUSION RATE: 24ML/H
     Route: 042
     Dates: start: 20160128, end: 20160129

REACTIONS (4)
  - Musculoskeletal stiffness [Recovered/Resolved]
  - Meningitis aseptic [Recovered/Resolved]
  - Pyrexia [Recovered/Resolved]
  - Nuchal rigidity [Recovered/Resolved]

NARRATIVE: CASE EVENT DATE: 20160129
